FAERS Safety Report 23548176 (Version 1)
Quarter: 2024Q1

REPORT INFORMATION
  Report Type: Spontaneous
  Country: US (occurrence: US)
  Receive Date: 20240221
  Receipt Date: 20240221
  Transmission Date: 20240410
  Serious: Yes (Other)
  Sender: FDA-Public Use
  Company Number: US-INTRA-CELLULAR THERAPIES, INC.-2024ICT00114

PATIENT
  Age: 35 Year
  Sex: Female
  Weight: 53.061 kg

DRUGS (3)
  1. CAPLYTA [Suspect]
     Active Substance: LUMATEPERONE
     Indication: Bipolar disorder
     Dosage: ^12.5 MG^, 1X/DAY
     Route: 048
     Dates: start: 202311, end: 202312
  2. CAPLYTA [Suspect]
     Active Substance: LUMATEPERONE
     Dosage: ^12.5 MG^, 1X/DAY
     Route: 048
     Dates: start: 2024, end: 2024
  3. UNSPECIFIED INGREDIENT [Concomitant]
     Active Substance: UNSPECIFIED INGREDIENT

REACTIONS (2)
  - Urinary retention [Recovered/Resolved]
  - Urinary tract infection [Recovered/Resolved]

NARRATIVE: CASE EVENT DATE: 20231101
